FAERS Safety Report 5106321-1 (Version None)
Quarter: 2006Q3

REPORT INFORMATION
  Report Type: 
  Country: None (occurrence: None)
  Receive Date: 20060912
  Receipt Date: 20060830
  Transmission Date: 20061208
  Serious: Yes (Other)
  Sender: FDA-Public Use
  Company Number: 2006106193

PATIENT
  Sex: Female

DRUGS (1)
  1. XALATAN [Suspect]
     Indication: GLAUCOMA
     Dosage: INTRAOCULAR
     Route: 031
     Dates: start: 20060201

REACTIONS (1)
  - ALPHA 1 FOETOPROTEIN DECREASED [None]
